FAERS Safety Report 9919430 (Version 2)
Quarter: 2014Q1

REPORT INFORMATION
  Report Type: Report from Study
  Country: US (occurrence: US)
  Receive Date: 20140224
  Receipt Date: 20140303
  Transmission Date: 20141002
  Serious: Yes (Other)
  Sender: FDA-Public Use
  Company Number: US-BAXTER-2014BAX008576

PATIENT
  Age: 26 Year
  Sex: Female
  Weight: 104 kg

DRUGS (2)
  1. GAMMAGARD LIQUID [Suspect]
     Indication: PRIMARY IMMUNODEFICIENCY SYNDROME
     Route: 058
     Dates: start: 20131014
  2. XOPENEX [Concomitant]
     Indication: ASTHMA
     Route: 055
     Dates: start: 2004

REACTIONS (6)
  - Bronchitis [Recovering/Resolving]
  - Skin infection [Recovering/Resolving]
  - Dizziness [Unknown]
  - Dyspnoea [Unknown]
  - Cyanosis [Unknown]
  - Cyanosis [Unknown]
